FAERS Safety Report 6088283-6 (Version None)
Quarter: 2009Q1

REPORT INFORMATION
  Report Type: 
  Country: None (occurrence: None)
  Receive Date: 20090224
  Receipt Date: 20090121
  Transmission Date: 20090719
  Serious: No
  Sender: FDA-Public Use
  Company Number: US-BAYER-200911407NA

PATIENT
  Age: 52 Year
  Sex: Female

DRUGS (1)
  1. CLIMARA [Suspect]
     Indication: PROPHYLAXIS
     Route: 062
     Dates: start: 20010101

REACTIONS (6)
  - FATIGUE [None]
  - HEART RATE INCREASED [None]
  - NO ADVERSE EVENT [None]
  - PERSONALITY CHANGE [None]
  - PRODUCT QUALITY ISSUE [None]
  - RESORPTION BONE INCREASED [None]
